FAERS Safety Report 17498798 (Version 1)
Quarter: 2020Q1

REPORT INFORMATION
  Report Type: Spontaneous
  Country: GB (occurrence: GB)
  Receive Date: 20200304
  Receipt Date: 20200304
  Transmission Date: 20200409
  Serious: Yes (Life-Threatening, Hospitalization)
  Sender: FDA-Public Use
  Company Number: GB-JNJFOC-20200230087

PATIENT
  Age: 13 Year
  Sex: Male

DRUGS (2)
  1. PREGADAY [Concomitant]
     Active Substance: FERROUS FUMARATE\FOLIC ACID
     Route: 065
  2. INFLIXIMAB, RECOMBINANT [Suspect]
     Active Substance: INFLIXIMAB
     Indication: INFLAMMATORY BOWEL DISEASE
     Route: 042
     Dates: start: 20191030, end: 20200124

REACTIONS (8)
  - Tachypnoea [Recovering/Resolving]
  - Oropharyngeal pain [Recovering/Resolving]
  - Cough [Recovering/Resolving]
  - Pneumothorax [Recovering/Resolving]
  - Pulmonary haemorrhage [Recovering/Resolving]
  - Acute interstitial pneumonitis [Recovering/Resolving]
  - Increased bronchial secretion [Recovering/Resolving]
  - Dyspnoea [Recovering/Resolving]

NARRATIVE: CASE EVENT DATE: 20200125
